FAERS Safety Report 7955788-X (Version None)
Quarter: 2011Q4

REPORT INFORMATION
  Report Type: 
  Country: None (occurrence: None)
  Receive Date: 20111205
  Receipt Date: 20111123
  Transmission Date: 20120403
  Serious: Yes (Hospitalization)
  Sender: FDA-Public Use
  Company Number: US-BIOGENIDEC-2010BI032266

PATIENT
  Age: 39 Year
  Sex: Female

DRUGS (4)
  1. DEPAKOTE [Concomitant]
     Indication: PAIN
     Dates: start: 20080101
  2. TYSABRI [Suspect]
     Indication: MULTIPLE SCLEROSIS
     Route: 042
     Dates: start: 20061025
  3. DEPAKOTE [Concomitant]
     Indication: BIPOLAR DISORDER
     Dates: start: 20080101
  4. WELLBUTRIN [Concomitant]
     Indication: DEPRESSION
     Route: 048
     Dates: start: 20080101

REACTIONS (7)
  - HYPOGAMMAGLOBULINAEMIA [None]
  - PNEUMONIA [None]
  - CEREBRAL ATROPHY [None]
  - CLAUSTROPHOBIA [None]
  - NEUROPATHY PERIPHERAL [None]
  - ASTHMA [None]
  - PANCREATITIS [None]
